FAERS Safety Report 4762907-5 (Version None)
Quarter: 2005Q3

REPORT INFORMATION
  Report Type: 
  Country: None (occurrence: None)
  Receive Date: 20050907
  Receipt Date: 20040512
  Transmission Date: 20060218
  Serious: Yes (Death, Other)
  Sender: FDA-Public Use
  Company Number: PHEH2004US05290

PATIENT
  Age: 61 Year
  Sex: Male

DRUGS (3)
  1. ZOMETA [Suspect]
     Indication: METASTASES TO BONE
     Dosage: 4 MG EVERY 4 WEEKS
     Route: 042
     Dates: start: 20011117, end: 20040303
  2. CORTICOSTEROIDS [Concomitant]
  3. CHEMOTHERAPEUTICS,OTHER [Concomitant]

REACTIONS (4)
  - ASEPTIC NECROSIS BONE [None]
  - MALIGNANT NEOPLASM PROGRESSION [None]
  - OSTEONECROSIS [None]
  - TOOTH INFECTION [None]
